FAERS Safety Report 24155945 (Version 1)
Quarter: 2024Q3

REPORT INFORMATION
  Report Type: Report from Study
  Country: US (occurrence: US)
  Receive Date: 20240731
  Receipt Date: 20240731
  Transmission Date: 20241016
  Serious: Yes (Other)
  Sender: ACCORD
  Company Number: US-Accord-437720

PATIENT
  Age: 69 Year
  Sex: Male

DRUGS (1)
  1. CLOZAPINE [Suspect]
     Active Substance: CLOZAPINE
     Indication: Product used for unknown indication

REACTIONS (8)
  - Mean cell volume increased [Not Recovered/Not Resolved]
  - Mean cell haemoglobin concentration decreased [Not Recovered/Not Resolved]
  - Lymphocyte percentage decreased [Recovered/Resolved]
  - Eosinophil percentage increased [Unknown]
  - Basophil percentage increased [Recovered/Resolved]
  - Lymphocyte count decreased [Recovering/Resolving]
  - Eosinophil count increased [Unknown]
  - Schizophrenia [Unknown]

NARRATIVE: CASE EVENT DATE: 20240515
